FAERS Safety Report 8282997-5 (Version None)
Quarter: 2012Q2

REPORT INFORMATION
  Report Type: 
  Country: None (occurrence: None)
  Receive Date: 20120413
  Receipt Date: 20120330
  Transmission Date: 20120825
  Serious: Yes (Hospitalization)
  Sender: FDA-Public Use
  Company Number: US-ROCHE-1056412

PATIENT
  Sex: Female
  Weight: 88 kg

DRUGS (38)
  1. BORTEZOMIB [Suspect]
     Indication: NON-HODGKIN'S LYMPHOMA
     Route: 042
     Dates: start: 20071107, end: 20071110
  2. DYAZIDE [Concomitant]
  3. DEXAMETHASONE [Concomitant]
  4. MORPHINE SULFATE [Concomitant]
  5. OXYCODONE HCL [Concomitant]
  6. DOXORUBICIN HCL [Concomitant]
  7. PREDNISONE TAB [Concomitant]
  8. PEGFILGRASTIM [Concomitant]
  9. DIPHENHYDRAMINE HCL [Concomitant]
  10. TOPROL-XL [Concomitant]
  11. OXYFAST [Concomitant]
  12. IFOSFAMIDE [Suspect]
     Indication: NON-HODGKIN'S LYMPHOMA
     Route: 065
  13. ACYCLOVIR [Concomitant]
  14. SODIUM CHLORIDE [Concomitant]
  15. DURAGESIC-100 [Concomitant]
  16. XANAX [Concomitant]
  17. REGLAN [Concomitant]
  18. ETOPOSIDE [Suspect]
     Indication: NON-HODGKIN'S LYMPHOMA
     Route: 042
  19. BIAXIN (UNITED STATES) [Concomitant]
  20. ACETAMINOPHEN [Concomitant]
  21. PAXIL CR [Concomitant]
  22. CEFTRIAXONE [Concomitant]
  23. DARBEPOETIN ALFA [Concomitant]
  24. LORAZEPAM [Concomitant]
  25. SOLU-CORTEF [Concomitant]
  26. NEXIUM [Concomitant]
  27. DILAUDID [Concomitant]
  28. MABTHERA [Suspect]
     Indication: NON-HODGKIN'S LYMPHOMA
     Dosage: FORM: SUSPENSION FOR INJECTION
     Route: 065
     Dates: end: 20071110
  29. CYCLOPHOSPHAMIDE [Concomitant]
  30. ATIVAN [Concomitant]
  31. COMPAZINE [Concomitant]
  32. CARBOPLATIN [Suspect]
     Indication: NON-HODGKIN'S LYMPHOMA
     Dosage: FORM: SUSPENSION FOR INJECTION
     Route: 065
  33. LEVAQUIN [Concomitant]
  34. ONDANSETRON [Concomitant]
  35. LEVOTHROID [Concomitant]
  36. HYDROCODONE [Concomitant]
  37. PERCOCET [Concomitant]
  38. VINCRISTINE [Concomitant]

REACTIONS (2)
  - RESPIRATORY ACIDOSIS [None]
  - PANCYTOPENIA [None]
